FAERS Safety Report 6151487-8 (Version None)
Quarter: 2009Q2

REPORT INFORMATION
  Report Type: 
  Country: None (occurrence: None)
  Receive Date: 20090410
  Receipt Date: 20090406
  Transmission Date: 20091009
  Serious: Yes (Other)
  Sender: FDA-Public Use
  Company Number: NL-ASTRAZENECA-2009AC00930

PATIENT
  Sex: Female
  Weight: 63 kg

DRUGS (2)
  1. ZOMIG [Suspect]
     Indication: MIGRAINE
     Route: 065
     Dates: start: 20001003
  2. AMITRIPTYLINE HCL [Concomitant]

REACTIONS (5)
  - ABNORMAL SENSATION IN EYE [None]
  - DRUG INEFFECTIVE [None]
  - FEELING COLD [None]
  - HEADACHE [None]
  - MUSCLE SPASMS [None]
